FAERS Safety Report 6129860-3 (Version None)
Quarter: 2009Q1

REPORT INFORMATION
  Report Type: 
  Country: None (occurrence: None)
  Receive Date: 20090323
  Receipt Date: 20090323
  Transmission Date: 20090719
  Serious: Yes (Life-Threatening, Other)
  Sender: FDA-Public Use
  Company Number: None

PATIENT
  Age: 35 Year
  Sex: Female
  Weight: 156.491 kg

DRUGS (1)
  1. BACTRIM [Suspect]
     Indication: INFECTION
     Dosage: 10 DAY COURSE, 8 OF 10 DAY TREATMENT
     Dates: start: 20051001, end: 20051008

REACTIONS (4)
  - BLOOD GLUCOSE FLUCTUATION [None]
  - DIABETES MELLITUS [None]
  - HYPOGLYCAEMIA [None]
  - PARADOXICAL DRUG REACTION [None]
